FAERS Safety Report 4626930-3 (Version None)
Quarter: 2005Q2

REPORT INFORMATION
  Report Type: 
  Country: None (occurrence: None)
  Receive Date: 20050401
  Receipt Date: 20050401
  Transmission Date: 20051028
  Serious: No
  Sender: FDA-Public Use
  Company Number: None

PATIENT
  Age: 5 Year
  Sex: Male
  Weight: 20.8655 kg

DRUGS (1)
  1. ISONIAZID 100MG TAB [Suspect]
     Indication: TUBERCULOSIS
     Dosage: 200 MG TOTAL (TWO 100 MG TABS ORALLY DAILY)
     Route: 048
     Dates: start: 20040901, end: 20050315

REACTIONS (3)
  - ABDOMINAL TENDERNESS [None]
  - HEPATOSPLENOMEGALY [None]
  - OCULAR ICTERUS [None]
